FAERS Safety Report 7945396-9 (Version None)
Quarter: 2011Q4

REPORT INFORMATION
  Report Type: 
  Country: None (occurrence: None)
  Receive Date: 20111129
  Receipt Date: 20110812
  Transmission Date: 20120403
  Serious: No
  Sender: FDA-Public Use
  Company Number: US-GLAXOSMITHKLINE-A0941592A

PATIENT
  Age: 53 Year
  Sex: Female

DRUGS (1)
  1. WELLBUTRIN SR [Suspect]
     Dosage: 200MG UNKNOWN
     Route: 065

REACTIONS (3)
  - MALAISE [None]
  - UNDERDOSE [None]
  - DRUG ADMINISTRATION ERROR [None]
